FAERS Safety Report 6869562-9 (Version None)
Quarter: 2010Q3

REPORT INFORMATION
  Report Type: 
  Country: None (occurrence: None)
  Receive Date: 20100722
  Receipt Date: 20080811
  Transmission Date: 20110219
  Serious: No
  Sender: FDA-Public Use
  Company Number: US-PFIZER INC-2008068084

PATIENT
  Sex: Female

DRUGS (2)
  1. CHANTIX [Suspect]
  2. DRUG, UNSPECIFIED [Concomitant]
     Indication: THYROID DISORDER

REACTIONS (4)
  - FLATULENCE [None]
  - INSOMNIA [None]
  - NAUSEA [None]
  - VOMITING [None]
